FAERS Safety Report 21917117 (Version 2)
Quarter: 2023Q1

REPORT INFORMATION
  Report Type: Spontaneous
  Country: US (occurrence: US)
  Receive Date: 20230126
  Receipt Date: 20230126
  Transmission Date: 20230417
  Serious: Yes (Hospitalization, Other)
  Sender: FDA-Public Use
  Company Number: US-PFIZER INC-PV202300006450

PATIENT
  Sex: Male
  Weight: 1.835 kg

DRUGS (3)
  1. CARBOPLATIN [Suspect]
     Active Substance: CARBOPLATIN
     Indication: Neuroblastoma
     Dosage: BEGUN ON DOL 67
  2. ETOPOSIDE [Suspect]
     Active Substance: ETOPOSIDE
     Indication: Respiratory disorder
     Dosage: BEGUN ON DOL 67
  3. ETOPOSIDE [Suspect]
     Active Substance: ETOPOSIDE
     Indication: Hepatic function abnormal

REACTIONS (2)
  - Neutropenia neonatal [Unknown]
  - Off label use [Unknown]
